FAERS Safety Report 11543058 (Version 1)
Quarter: 2015Q3

REPORT INFORMATION
  Report Type: Spontaneous
  Country: US (occurrence: US)
  Receive Date: 20150903
  Receipt Date: 20150903
  Transmission Date: 20151125
  Serious: Yes (Other)
  Sender: FDA-Public Use
  Company Number: US-ELI_LILLY_AND_COMPANY-US201106000623

PATIENT
  Sex: Male

DRUGS (2)
  1. LANTUS [Concomitant]
     Active Substance: INSULIN GLARGINE
     Dosage: UNK
  2. HUMALOG [Suspect]
     Active Substance: INSULIN LISPRO
     Indication: DIABETES MELLITUS
     Dosage: UNK, PRN

REACTIONS (10)
  - Depressed level of consciousness [Unknown]
  - Thinking abnormal [Unknown]
  - Blood glucose increased [Unknown]
  - Hypoglycaemia unawareness [Unknown]
  - Diabetes mellitus inadequate control [Not Recovered/Not Resolved]
  - Blood glucose decreased [Unknown]
  - Intentional product use issue [Unknown]
  - Hypoglycaemic unconsciousness [Unknown]
  - Memory impairment [Unknown]
  - Visual impairment [Unknown]
